FAERS Safety Report 8142171-X (Version None)
Quarter: 2012Q1

REPORT INFORMATION
  Report Type: 
  Country: None (occurrence: None)
  Receive Date: 20120216
  Receipt Date: 20120213
  Transmission Date: 20120608
  Serious: Yes (Life-Threatening, Hospitalization)
  Sender: FDA-Public Use
  Company Number: DE-ROCHE-1034720

PATIENT
  Sex: Female
  Weight: 53 kg

DRUGS (5)
  1. OXALIPLATIN [Suspect]
     Indication: COLORECTAL CANCER METASTATIC
     Dosage: LAST DOSE PRIOR TO SAE: 23 JAN 2012
     Route: 042
     Dates: start: 20120104
  2. FLUOROURACIL [Suspect]
     Indication: COLORECTAL CANCER METASTATIC
     Dosage: LAST DOSE PRIOR TO SAE: 23 JAN 2012
     Route: 042
     Dates: start: 20120104
  3. LEUCOVORIN CALCIUM [Suspect]
     Indication: COLORECTAL CANCER METASTATIC
     Dosage: LAST DOSE PRIOR TO SAE: 23 JAN 2012
     Route: 042
     Dates: start: 20120104
  4. AVASTIN [Suspect]
     Indication: COLORECTAL CANCER METASTATIC
     Dosage: LAST DOSE PRIOR TO SAE: 23 JAN 2012
     Dates: start: 20120104
  5. IRINOTECAN HYDROCHLORIDE [Suspect]
     Indication: COLORECTAL CANCER METASTATIC
     Dosage: LAST DOSE PRIOR TO SAE: 23 JAN 2012
     Route: 042
     Dates: start: 20120104, end: 20120127

REACTIONS (3)
  - EATING DISORDER [None]
  - GASTROENTERITIS NOROVIRUS [None]
  - NEUTROPENIA [None]
